FAERS Safety Report 7014298-7 (Version None)
Quarter: 2010Q3

REPORT INFORMATION
  Report Type: 
  Country: None (occurrence: None)
  Receive Date: 20100924
  Receipt Date: 20100924
  Transmission Date: 20110219
  Serious: Yes (Other)
  Sender: FDA-Public Use
  Company Number: None

PATIENT
  Age: 63 Year
  Sex: Female
  Weight: 58.9676 kg

DRUGS (1)
  1. SAVELLA [Suspect]
     Dosage: 50 MG 2 X DAILY PO
     Route: 048
     Dates: start: 20100501, end: 20100913

REACTIONS (1)
  - ALOPECIA [None]
